FAERS Safety Report 18231501 (Version 4)
Quarter: 2020Q4

REPORT INFORMATION
  Report Type: Spontaneous
  Country: US (occurrence: US)
  Receive Date: 20200904
  Receipt Date: 20201204
  Transmission Date: 20210113
  Serious: Yes (Hospitalization)
  Sender: FDA-Public Use
  Company Number: US-RECORDATI RARE DISEASES-2089398

PATIENT
  Age: 58 Year
  Sex: Female

DRUGS (3)
  1. CYSTADANE [Suspect]
     Active Substance: BETAINE
     Indication: HOMOCYSTINURIA
     Dates: start: 201407
  2. CYSTADANE [Suspect]
     Active Substance: BETAINE
     Indication: VITAMIN B COMPLEX DEFICIENCY
     Dates: start: 201407
  3. CYSTADANE [Suspect]
     Active Substance: BETAINE

REACTIONS (5)
  - Dyspnoea [Unknown]
  - Pneumonia [Recovering/Resolving]
  - Pulmonary oedema [Unknown]
  - Cholecystitis [Recovering/Resolving]
  - Product dose omission issue [Unknown]

NARRATIVE: CASE EVENT DATE: 2020
